FAERS Safety Report 5542207-6 (Version None)
Quarter: 2007Q4

REPORT INFORMATION
  Report Type: 
  Country: None (occurrence: None)
  Receive Date: 20071210
  Receipt Date: 20071203
  Transmission Date: 20080405
  Serious: Yes (Hospitalization)
  Sender: FDA-Public Use
  Company Number: US-GENENTECH-252188

PATIENT
  Sex: Female

DRUGS (3)
  1. BEVACIZUMAB [Suspect]
     Indication: RECTAL CANCER
     Dosage: UNK, UNKNOWN
     Route: 065
     Dates: start: 20071106
  2. OXALIPLATIN [Concomitant]
     Indication: RECTAL CANCER
     Dosage: UNK, UNKNOWN
     Route: 065
     Dates: start: 20071106
  3. LEUCOVORIN CALCIUM [Concomitant]
     Indication: RECTAL CANCER
     Dosage: UNK, UNKNOWN
     Route: 065
     Dates: start: 20071106

REACTIONS (1)
  - HOT FLUSH [None]
